FAERS Safety Report 12998861 (Version 3)
Quarter: 2016Q4

REPORT INFORMATION
  Report Type: Report from Study
  Country: US (occurrence: US)
  Receive Date: 20161205
  Receipt Date: 20161227
  Transmission Date: 20170207
  Serious: Yes (Other)
  Sender: FDA-Public Use
  Company Number: US-GILEAD-2016-0242759

PATIENT
  Age: 52 Year
  Sex: Male
  Weight: 107.3 kg

DRUGS (14)
  1. UPTRAVI [Suspect]
     Active Substance: SELEXIPAG
     Indication: PRODUCT USED FOR UNKNOWN INDICATION
     Dosage: 800 UG, UNK
     Route: 065
  2. AMBRISENTAN [Suspect]
     Active Substance: AMBRISENTAN
     Dosage: 5 MG, UNK
     Route: 065
  3. WARFARIN SODIUM. [Concomitant]
     Active Substance: WARFARIN SODIUM
  4. DIGOXIN. [Concomitant]
     Active Substance: DIGOXIN
  5. JANTOVEN [Concomitant]
     Active Substance: WARFARIN SODIUM
  6. KLOR-CON [Concomitant]
     Active Substance: POTASSIUM CHLORIDE
  7. AMBRISENTAN [Suspect]
     Active Substance: AMBRISENTAN
     Indication: PULMONARY ARTERIAL HYPERTENSION
     Dosage: 10 MG, QD
     Route: 065
     Dates: start: 20160502, end: 20161206
  8. SILDENAFIL. [Concomitant]
     Active Substance: SILDENAFIL
  9. ASPIRIN                            /00002701/ [Concomitant]
     Active Substance: ASPIRIN
  10. CARVEDILOL. [Concomitant]
     Active Substance: CARVEDILOL
  11. ATORVASTATIN CALCIUM. [Concomitant]
     Active Substance: ATORVASTATIN CALCIUM
  12. RAMIPRIL. [Concomitant]
     Active Substance: RAMIPRIL
  13. TORSEMIDE. [Concomitant]
     Active Substance: TORSEMIDE
  14. POTASSIUM [Concomitant]
     Active Substance: POTASSIUM

REACTIONS (2)
  - Headache [Not Recovered/Not Resolved]
  - Pneumonia [Not Recovered/Not Resolved]

NARRATIVE: CASE EVENT DATE: 20161104
